FAERS Safety Report 6136045-3 (Version None)
Quarter: 2009Q1

REPORT INFORMATION
  Report Type: 
  Country: None (occurrence: None)
  Receive Date: 20090325
  Receipt Date: 20090308
  Transmission Date: 20090719
  Serious: Yes (Other)
  Sender: FDA-Public Use
  Company Number: 2007S1009326

PATIENT
  Age: 62 Year
  Sex: Female
  Weight: 68.4932 kg

DRUGS (11)
  1. PHOSPHOSODA FLAVOR NOT SPECIFIED [Suspect]
     Indication: COLONOSCOPY
     Dosage: 90 ML;TOTAL;PO
     Route: 048
     Dates: start: 20050221, end: 20050222
  2. ADVAIR HFA [Concomitant]
  3. ALBUTEROL [Concomitant]
  4. AMBIEN [Concomitant]
  5. CLARINEX [Concomitant]
  6. LIPITOR [Concomitant]
  7. NEXIUM [Concomitant]
  8. RHINOCORT [Concomitant]
  9. XANAX [Concomitant]
  10. ASPIRIN [Concomitant]
  11. VITAMIN E [Concomitant]

REACTIONS (6)
  - ANAEMIA [None]
  - HYPERPARATHYROIDISM [None]
  - HYPERTENSION [None]
  - RENAL FAILURE ACUTE [None]
  - RENAL FAILURE CHRONIC [None]
  - TUBULOINTERSTITIAL NEPHRITIS [None]
